FAERS Safety Report 6367494-6 (Version None)
Quarter: 2009Q3

REPORT INFORMATION
  Report Type: 
  Country: None (occurrence: None)
  Receive Date: 20090915
  Receipt Date: 20090901
  Transmission Date: 20100115
  Serious: Yes (Death)
  Sender: FDA-Public Use
  Company Number: B0592570A

PATIENT
  Sex: 0

DRUGS (3)
  1. MELPHALAN HYDROCHLORIDE [Suspect]
     Indication: MULTIPLE MYELOMA
  2. PREDNISONE [Suspect]
     Indication: MULTIPLE MYELOMA
  3. DISODIUM CLODRONATE [Concomitant]

REACTIONS (2)
  - DRUG TOXICITY [None]
  - INTESTINAL PERFORATION [None]
